FAERS Safety Report 21771846 (Version 1)
Quarter: 2022Q4

REPORT INFORMATION
  Report Type: Report from Study
  Country: PT (occurrence: PT)
  Receive Date: 20221223
  Receipt Date: 20221223
  Transmission Date: 20230113
  Serious: Yes (Death, Other)
  Sender: FDA-Public Use
  Company Number: PT-TAKEDA-2022TUS100396

PATIENT
  Age: 68 Year

DRUGS (1)
  1. MOBOCERTINIB [Suspect]
     Active Substance: MOBOCERTINIB
     Indication: Non-small cell lung cancer
     Dosage: 120 MILLIGRAM
     Route: 065
     Dates: start: 20220210

REACTIONS (3)
  - Non-small cell lung cancer [Fatal]
  - Respiratory failure [Fatal]
  - Drug ineffective [Unknown]
